FAERS Safety Report 19232883 (Version 1)
Quarter: 2021Q2

REPORT INFORMATION
  Report Type: Spontaneous
  Country: US (occurrence: US)
  Receive Date: 20210507
  Receipt Date: 20210507
  Transmission Date: 20210717
  Serious: Yes (Other)
  Sender: FDA-Public Use
  Company Number: US-PFIZER INC-2021486665

PATIENT
  Age: 42 Year
  Sex: Male

DRUGS (4)
  1. ALPRAZOLAM. [Suspect]
     Active Substance: ALPRAZOLAM
     Indication: DEPRESSION
     Dosage: 0.5 MG, 3X/DAY
  2. ALPRAZOLAM. [Suspect]
     Active Substance: ALPRAZOLAM
     Dosage: DIMINISHED IN INCREMENTS OF 0.5 MG PER WEEK
  3. ALPRAZOLAM. [Suspect]
     Active Substance: ALPRAZOLAM
     Indication: ANXIETY
     Dosage: 1 MG, 3X/DAY
  4. ALPRAZOLAM. [Suspect]
     Active Substance: ALPRAZOLAM
     Dosage: 2 MG, 3X/DAY

REACTIONS (9)
  - Intrusive thoughts [Unknown]
  - Insomnia [Unknown]
  - Prescribed overdose [Unknown]
  - Dissociation [Recovered/Resolved]
  - Nightmare [Unknown]
  - Anxiety [Unknown]
  - Withdrawal syndrome [Unknown]
  - Restlessness [Unknown]
  - Irritability [Unknown]
